FAERS Safety Report 4319904-3 (Version None)
Quarter: 2004Q1

REPORT INFORMATION
  Report Type: 
  Country: None (occurrence: None)
  Receive Date: 20040319
  Receipt Date: 20040311
  Transmission Date: 20041129
  Serious: Yes (Other)
  Sender: FDA-Public Use
  Company Number: FR-BRISTOL-MYERS SQUIBB COMPANY-12531844

PATIENT
  Age: 72 Year
  Sex: Female

DRUGS (3)
  1. COAPROVEL TABS 150MG/12.5MG [Suspect]
     Route: 048
     Dates: start: 20040309
  2. BRICANYL [Concomitant]
  3. ATROVENT [Concomitant]

REACTIONS (7)
  - CHILLS [None]
  - COUGH [None]
  - FATIGUE [None]
  - MIGRAINE [None]
  - MYALGIA [None]
  - SOMNOLENCE [None]
  - TACHYCARDIA [None]
